FAERS Safety Report 21845982 (Version 1)
Quarter: 2023Q1

REPORT INFORMATION
  Report Type: Spontaneous
  Country: BE (occurrence: BE)
  Receive Date: 20230111
  Receipt Date: 20230111
  Transmission Date: 20230418
  Serious: Yes (Hospitalization, Other)
  Sender: FDA-Public Use
  Company Number: BE-SA-SAC20230106000971

PATIENT
  Age: 61 Year
  Sex: Male

DRUGS (5)
  1. AUBAGIO [Suspect]
     Active Substance: TERIFLUNOMIDE
     Indication: Product used for unknown indication
     Dosage: UNK
  2. CHOLECALCIFEROL [Concomitant]
     Active Substance: CHOLECALCIFEROL
  3. ETILEFRINE HYDROCHLORIDE [Concomitant]
     Active Substance: ETILEFRINE HYDROCHLORIDE
     Dosage: 5 MG, Q8H
  4. SOLIFENACIN [Concomitant]
     Active Substance: SOLIFENACIN
     Dosage: 10 MG, Q8H
  5. TAMSULOSIN [Concomitant]
     Active Substance: TAMSULOSIN
     Dosage: 0.4 MG, Q8H

REACTIONS (12)
  - Multiple sclerosis [Unknown]
  - Hepatic lesion [Unknown]
  - Skin discolouration [Unknown]
  - Abdominal pain [Unknown]
  - Abnormal faeces [Unknown]
  - Anal incontinence [Unknown]
  - Chromaturia [Unknown]
  - Pollakiuria [Unknown]
  - Bladder dysfunction [Unknown]
  - Weight decreased [Unknown]
  - Drug-induced liver injury [Unknown]
  - Transaminases abnormal [Unknown]

NARRATIVE: CASE EVENT DATE: 20221226
